FAERS Safety Report 12262427 (Version 1)
Quarter: 2016Q2

REPORT INFORMATION
  Report Type: Spontaneous
  Country: US (occurrence: US)
  Receive Date: 20160413
  Receipt Date: 20160413
  Transmission Date: 20160815
  Serious: No
  Sender: FDA-Public Use
  Company Number: US-GLENMARK PHARMACEUTICALS INC, USA.-2016GMK021958

PATIENT

DRUGS (1)
  1. LAMOTRIGINE. [Suspect]
     Active Substance: LAMOTRIGINE
     Indication: PRODUCT USED FOR UNKNOWN INDICATION
     Dosage: UNK

REACTIONS (11)
  - Toxicity to various agents [Unknown]
  - Tremor [Unknown]
  - Confusional state [Unknown]
  - Nausea [Unknown]
  - Agitation [Unknown]
  - Vomiting [Unknown]
  - Dizziness [Unknown]
  - Lethargy [Unknown]
  - Vertigo [Unknown]
  - Delirium [Unknown]
  - Ataxia [Unknown]
